FAERS Safety Report 4420694-4 (Version None)
Quarter: 2004Q3

REPORT INFORMATION
  Report Type: 
  Country: None (occurrence: None)
  Receive Date: 20040809
  Receipt Date: 20040427
  Transmission Date: 20050211
  Serious: No
  Sender: FDA-Public Use
  Company Number: US-GLAXOSMITHKLINE-A0508668A

PATIENT
  Age: 72 Year
  Sex: Female

DRUGS (7)
  1. PAXIL [Suspect]
     Indication: DEPRESSION
     Dosage: 10MG PER DAY
     Route: 048
  2. BUMEX [Concomitant]
  3. POTASSIUM [Concomitant]
  4. COMBIVENT [Concomitant]
  5. ALBUTEROL [Concomitant]
  6. PROVENTIL [Concomitant]
  7. IPATROPIUM BROMIDE [Concomitant]

REACTIONS (1)
  - NAUSEA [None]
